FAERS Safety Report 8890289 (Version 1)
Quarter: 2012Q4

REPORT INFORMATION
  Report Type: 
  Country: CA (occurrence: CA)
  Receive Date: 20121106
  Receipt Date: 20121106
  Transmission Date: 20130627
  Serious: Yes (Other)
  Sender: FDA-Public Use
  Company Number: PHHY2005CA007825

PATIENT

DRUGS (1)
  1. SANDOSTATIN LAR [Suspect]
     Dates: start: 20050812

REACTIONS (8)
  - Hypotension [Unknown]
  - Hyperkalaemia [Unknown]
  - Diarrhoea [Unknown]
  - Bradycardia [Unknown]
  - Heart rate decreased [Unknown]
  - Blood glucose increased [Unknown]
  - Heart rate increased [Unknown]
  - Nausea [Unknown]
